FAERS Safety Report 18941837 (Version 3)
Quarter: 2021Q2

REPORT INFORMATION
  Report Type: Report from Study
  Country: None (occurrence: JP)
  Receive Date: 20210225
  Receipt Date: 20210413
  Transmission Date: 20210717
  Serious: Yes (Death)
  Sender: FDA-Public Use
  Company Number: JP-ABBVIE-21P-087-3787204-00

PATIENT
  Age: 86 Year
  Sex: Male

DRUGS (11)
  1. BLOPRESS [Concomitant]
     Active Substance: CANDESARTAN CILEXETIL
     Indication: PRODUCT USED FOR UNKNOWN INDICATION
     Dosage: 2 MILLIGRAM
     Route: 065
     Dates: end: 20190722
  2. LEUPLIN [Suspect]
     Active Substance: LEUPROLIDE ACETATE
     Indication: BULBOSPINAL MUSCULAR ATROPHY CONGENITAL
     Dosage: 11.25 MILLIGRAM, Q3MONTHS
     Route: 050
     Dates: start: 20171023
  3. URSODEOXYCHOLIC ACID [Concomitant]
     Active Substance: URSODIOL
     Indication: CHRONIC HEPATITIS
     Dosage: 300 MILLIGRAM
     Route: 065
  4. LAC?B [Concomitant]
     Active Substance: BIFIDOBACTERIUM SPP.
     Indication: RECTAL CANCER
     Dosage: 3 DOSAGE FORM
     Route: 065
  5. PANTOSIN [Concomitant]
     Active Substance: PANTETHINE
     Indication: PRODUCT USED FOR UNKNOWN INDICATION
     Dosage: 600 MILLIGRAM
     Route: 065
     Dates: end: 20190722
  6. EPADEL?S [Concomitant]
     Active Substance: ICOSAPENT ETHYL
     Indication: PRODUCT USED FOR UNKNOWN INDICATION
     Dosage: 1800 MILLIGRAM
     Route: 065
     Dates: end: 20190722
  7. ATELEC [Concomitant]
     Active Substance: CILNIDIPINE
     Indication: PRODUCT USED FOR UNKNOWN INDICATION
     Dosage: 10 MILLIGRAM
     Route: 065
     Dates: start: 20191007
  8. MUCOSTA [Concomitant]
     Active Substance: REBAMIPIDE
     Indication: HELICOBACTER GASTRITIS
     Dosage: 100 MILLIGRAM
     Route: 065
     Dates: start: 20101006
  9. METHYCOBAL [Concomitant]
     Active Substance: METHYLCOBALAMIN
     Indication: BULBOSPINAL MUSCULAR ATROPHY CONGENITAL
     Dosage: 1.5 MILLIGRAM
     Route: 065
  10. ALLELOCK [Concomitant]
     Active Substance: OLOPATADINE HYDROCHLORIDE
     Indication: ECZEMA NUMMULAR
     Dosage: 10 MILLIGRAM
     Route: 065
  11. MAGMITT [Concomitant]
     Active Substance: MAGNESIUM OXIDE
     Indication: CONSTIPATION
     Dosage: 2970 MILLIGRAM
     Route: 065

REACTIONS (1)
  - Bulbospinal muscular atrophy congenital [Fatal]

NARRATIVE: CASE EVENT DATE: 20210122
